FAERS Safety Report 26204022 (Version 1)
Quarter: 2025Q4

REPORT INFORMATION
  Report Type: Spontaneous
  Country: CA (occurrence: CA)
  Receive Date: 20251226
  Receipt Date: 20251226
  Transmission Date: 20260117
  Serious: Yes (Life-Threatening, Hospitalization, Disabling, Congenital Anomaly, Other)
  Sender: BRISTOL-MYERS SQUIBB COMPANY
  Company Number: CA-BRISTOL-MYERS SQUIBB COMPANY-2025-168344

PATIENT
  Age: 40 Year
  Sex: Female
  Weight: 96 kg

DRUGS (204)
  1. ORENCIA [Suspect]
     Active Substance: ABATACEPT
     Indication: Rheumatoid arthritis
     Route: 058
  2. ORENCIA [Suspect]
     Active Substance: ABATACEPT
     Route: 058
  3. ORENCIA [Suspect]
     Active Substance: ABATACEPT
     Indication: Rheumatoid arthritis
  4. ORENCIA [Suspect]
     Active Substance: ABATACEPT
  5. ORENCIA [Suspect]
     Active Substance: ABATACEPT
  6. ORENCIA [Suspect]
     Active Substance: ABATACEPT
     Indication: Rheumatoid arthritis
     Route: 040
  7. ACETAMINOPHEN [Concomitant]
     Active Substance: ACETAMINOPHEN
     Indication: Rheumatoid arthritis
  8. ACETAMINOPHEN [Concomitant]
     Active Substance: ACETAMINOPHEN
  9. ACTEMRA [Concomitant]
     Active Substance: TOCILIZUMAB
     Indication: Rheumatoid arthritis
     Route: 042
  10. ACTEMRA [Concomitant]
     Active Substance: TOCILIZUMAB
     Route: 058
  11. ACTEMRA [Concomitant]
     Active Substance: TOCILIZUMAB
     Route: 042
  12. ACTEMRA [Concomitant]
     Active Substance: TOCILIZUMAB
  13. ACTEMRA [Concomitant]
     Active Substance: TOCILIZUMAB
  14. ACTEMRA [Concomitant]
     Active Substance: TOCILIZUMAB
     Route: 042
  15. ACTEMRA [Concomitant]
     Active Substance: TOCILIZUMAB
     Route: 058
  16. ACTEMRA [Concomitant]
     Active Substance: TOCILIZUMAB
  17. ACTEMRA [Concomitant]
     Active Substance: TOCILIZUMAB
     Route: 042
  18. ACTEMRA [Concomitant]
     Active Substance: TOCILIZUMAB
     Route: 042
  19. ACTEMRA [Concomitant]
     Active Substance: TOCILIZUMAB
     Route: 042
  20. ACTEMRA [Concomitant]
     Active Substance: TOCILIZUMAB
     Route: 058
  21. ACTEMRA [Concomitant]
     Active Substance: TOCILIZUMAB
  22. ACTEMRA [Concomitant]
     Active Substance: TOCILIZUMAB
     Route: 042
  23. ACTEMRA [Concomitant]
     Active Substance: TOCILIZUMAB
     Route: 058
  24. AIMOVIG [Concomitant]
     Active Substance: ERENUMAB-AOOE
     Indication: Migraine
  25. ALENDRONATE SODIUM\CHOLECALCIFEROL [Concomitant]
     Active Substance: ALENDRONATE SODIUM\CHOLECALCIFEROL
     Indication: Product used for unknown indication
  26. LEFLUNOMIDE [Concomitant]
     Active Substance: LEFLUNOMIDE
     Indication: Rheumatoid arthritis
  27. LEFLUNOMIDE [Concomitant]
     Active Substance: LEFLUNOMIDE
     Route: 048
  28. LEFLUNOMIDE [Concomitant]
     Active Substance: LEFLUNOMIDE
     Route: 048
  29. LEFLUNOMIDE [Concomitant]
     Active Substance: LEFLUNOMIDE
  30. LEFLUNOMIDE [Concomitant]
     Active Substance: LEFLUNOMIDE
     Route: 048
  31. PREDNISONE [Concomitant]
     Active Substance: PREDNISONE
     Indication: Rheumatoid arthritis
  32. PREDNISONE [Concomitant]
     Active Substance: PREDNISONE
     Route: 048
  33. PREDNISONE [Concomitant]
     Active Substance: PREDNISONE
  34. PREDNISONE [Concomitant]
     Active Substance: PREDNISONE
  35. PREDNISONE [Concomitant]
     Active Substance: PREDNISONE
  36. PREDNISONE [Concomitant]
     Active Substance: PREDNISONE
     Route: 048
  37. PREDNISONE [Concomitant]
     Active Substance: PREDNISONE
  38. PREDNISONE [Concomitant]
     Active Substance: PREDNISONE
     Route: 048
  39. PREDNISONE [Concomitant]
     Active Substance: PREDNISONE
     Route: 048
  40. PREDNISONE [Concomitant]
     Active Substance: PREDNISONE
     Route: 048
  41. ARAVA [Concomitant]
     Active Substance: LEFLUNOMIDE
     Indication: Rheumatoid arthritis
     Route: 048
  42. ARAVA [Concomitant]
     Active Substance: LEFLUNOMIDE
     Route: 048
  43. ARAVA [Concomitant]
     Active Substance: LEFLUNOMIDE
     Route: 048
  44. ATOMOXETINE HYDROCHLORIDE [Concomitant]
     Active Substance: ATOMOXETINE HYDROCHLORIDE
     Indication: Migraine
  45. AZATHIOPRINE [Concomitant]
     Active Substance: AZATHIOPRINE
     Indication: Product used for unknown indication
  46. BENFOTIAMINE [Concomitant]
     Active Substance: BENFOTIAMINE
     Indication: Product used for unknown indication
  47. BERINERT [Concomitant]
     Active Substance: HUMAN C1-ESTERASE INHIBITOR
     Indication: Product used for unknown indication
  48. BOTULINUM TOXIN TYPE A [Concomitant]
     Active Substance: BOTULINUM TOXIN TYPE A
     Indication: Product used for unknown indication
     Dosage: POWDER FOR SOLUTION
  49. BUTRANS [Concomitant]
     Active Substance: BUPRENORPHINE
     Indication: Product used for unknown indication
  50. CALCIUM ASCORBATE [Concomitant]
     Active Substance: CALCIUM ASCORBATE
     Indication: Product used for unknown indication
  51. CALCIUM CARBONATE [Concomitant]
     Active Substance: CALCIUM CARBONATE
     Indication: Product used for unknown indication
  52. CALCIUM CARBONATE\CHOLECALCIFEROL [Concomitant]
     Active Substance: CALCIUM CARBONATE\CHOLECALCIFEROL
     Indication: Product used for unknown indication
  53. CALCIUM GLUBIONATE [Concomitant]
     Active Substance: CALCIUM GLUBIONATE
     Indication: Product used for unknown indication
  54. CANDESARTAN [Concomitant]
     Active Substance: CANDESARTAN
     Indication: Migraine
     Route: 048
  55. CANDESARTAN [Concomitant]
     Active Substance: CANDESARTAN
  56. CELECOXIB [Concomitant]
     Active Substance: CELECOXIB
     Indication: Product used for unknown indication
     Route: 048
  57. CELECOXIB [Concomitant]
     Active Substance: CELECOXIB
     Route: 048
  58. CIMZIA [Concomitant]
     Active Substance: CERTOLIZUMAB PEGOL
     Indication: Rheumatoid arthritis
     Route: 058
  59. CIMZIA [Concomitant]
     Active Substance: CERTOLIZUMAB PEGOL
     Route: 048
  60. CIMZIA [Concomitant]
     Active Substance: CERTOLIZUMAB PEGOL
     Route: 058
  61. CORTISONE ACETATE [Concomitant]
     Active Substance: CORTISONE ACETATE
     Indication: Rheumatoid arthritis
  62. CORTISONE ACETATE [Concomitant]
     Active Substance: CORTISONE ACETATE
  63. COSENTYX [Concomitant]
     Active Substance: SECUKINUMAB
     Indication: Psoriatic arthropathy
  64. DESOGESTREL\ETHINYL ESTRADIOL [Concomitant]
     Active Substance: DESOGESTREL\ETHINYL ESTRADIOL
     Indication: Product used for unknown indication
  65. DESOXIMETASONE [Concomitant]
     Active Substance: DESOXIMETASONE
     Indication: Rheumatoid arthritis
     Route: 048
  66. DESOXIMETASONE [Concomitant]
     Active Substance: DESOXIMETASONE
     Route: 058
  67. DESOXIMETASONE [Concomitant]
     Active Substance: DESOXIMETASONE
     Route: 058
  68. DESOXIMETASONE [Concomitant]
     Active Substance: DESOXIMETASONE
  69. DESOXIMETASONE [Concomitant]
     Active Substance: DESOXIMETASONE
     Route: 048
  70. DOMPERIDONE MALEATE [Concomitant]
     Active Substance: DOMPERIDONE MALEATE
     Indication: Product used for unknown indication
  71. ENBREL [Concomitant]
     Active Substance: ETANERCEPT
     Indication: Rheumatoid arthritis
     Route: 058
  72. ENBREL [Concomitant]
     Active Substance: ETANERCEPT
     Route: 058
  73. ENBREL [Concomitant]
     Active Substance: ETANERCEPT
  74. ENBREL [Concomitant]
     Active Substance: ETANERCEPT
     Route: 058
  75. ENBREL [Concomitant]
     Active Substance: ETANERCEPT
     Route: 058
  76. ERELZI [Concomitant]
     Active Substance: ETANERCEPT-SZZS
     Indication: Rheumatoid arthritis
     Route: 058
  77. ERELZI [Concomitant]
     Active Substance: ETANERCEPT-SZZS
     Dosage: SUBDERMAL
  78. ERGOCALCIFEROL [Concomitant]
     Active Substance: ERGOCALCIFEROL
     Indication: Product used for unknown indication
  79. FLUMETHASONE PIVALATE [Concomitant]
     Active Substance: FLUMETHASONE PIVALATE
     Indication: Product used for unknown indication
  80. FOLIC ACID [Concomitant]
     Active Substance: FOLIC ACID
     Indication: Rheumatoid arthritis
  81. FOLIC ACID [Concomitant]
     Active Substance: FOLIC ACID
  82. FOLIC ACID [Concomitant]
     Active Substance: FOLIC ACID
     Route: 048
  83. FOLIC ACID [Concomitant]
     Active Substance: FOLIC ACID
     Route: 048
  84. FOLIC ACID [Concomitant]
     Active Substance: FOLIC ACID
     Route: 048
  85. FOLIC ACID [Concomitant]
     Active Substance: FOLIC ACID
     Route: 048
  86. FOSAMAX [Concomitant]
     Active Substance: ALENDRONATE SODIUM
     Indication: Rheumatoid arthritis
  87. FOSAMAX [Concomitant]
     Active Substance: ALENDRONATE SODIUM
     Route: 048
  88. GOLD SODIUM THIOMALATE [Concomitant]
     Active Substance: GOLD SODIUM THIOMALATE
     Indication: Product used for unknown indication
  89. GOLIMUMAB [Concomitant]
     Active Substance: GOLIMUMAB
     Indication: Rheumatoid arthritis
  90. GOLIMUMAB [Concomitant]
     Active Substance: GOLIMUMAB
     Indication: Prostatic specific antigen
  91. HUMIRA [Concomitant]
     Active Substance: ADALIMUMAB
     Indication: Rheumatoid arthritis
  92. HUMIRA [Concomitant]
     Active Substance: ADALIMUMAB
     Dosage: SOLUTION SUBCUTANEOUS
  93. HYDROCORTISONE SODIUM SUCCINATE [Concomitant]
     Active Substance: HYDROCORTISONE SODIUM SUCCINATE
     Indication: Rheumatoid arthritis
     Dosage: POWDER FOR SOLUTION
     Route: 058
  94. HYDROXYCHLOROQUINE [Concomitant]
     Active Substance: HYDROXYCHLOROQUINE
     Indication: Rheumatoid arthritis
  95. HYDROXYCHLOROQUINE [Concomitant]
     Active Substance: HYDROXYCHLOROQUINE
  96. HYDROXYCHLOROQUINE [Concomitant]
     Active Substance: HYDROXYCHLOROQUINE
  97. HYDROXYCHLOROQUINE [Concomitant]
     Active Substance: HYDROXYCHLOROQUINE
  98. HYDROXYCHLOROQUINE SULFATE [Concomitant]
     Active Substance: HYDROXYCHLOROQUINE SULFATE
     Indication: Rheumatoid arthritis
  99. HYRIMOZ [Concomitant]
     Active Substance: ADALIMUMAB-ADAZ
     Indication: Rheumatoid arthritis
     Dosage: SOLUTION SUBCUTANEOUS
     Route: 058
  100. HYRIMOZ [Concomitant]
     Active Substance: ADALIMUMAB-ADAZ
     Route: 058
  101. INFLIXIMAB [Concomitant]
     Active Substance: INFLIXIMAB
     Indication: Rheumatoid arthritis
     Route: 040
  102. ISOPROPYL ALCOHOL [Concomitant]
     Active Substance: ISOPROPYL ALCOHOL
     Indication: Product used for unknown indication
  103. LAMICTAL [Concomitant]
     Active Substance: LAMOTRIGINE
     Indication: Product used for unknown indication
     Route: 048
  104. LAMICTAL [Concomitant]
     Active Substance: LAMOTRIGINE
     Route: 048
  105. CLIOQUINOL\FLUMETHASONE [Concomitant]
     Active Substance: CLIOQUINOL\FLUMETHASONE
     Indication: Product used for unknown indication
  106. MAGNESIUM CHLORIDE [Concomitant]
     Active Substance: MAGNESIUM CHLORIDE
     Indication: Product used for unknown indication
     Route: 048
  107. DIATRIZOATE MEGLUMINE [Concomitant]
     Active Substance: DIATRIZOATE MEGLUMINE
     Indication: Product used for unknown indication
     Route: 040
  108. METFORMIN [Concomitant]
     Active Substance: METFORMIN HYDROCHLORIDE
     Indication: Product used for unknown indication
     Route: 042
  109. METHOTREXATE [Concomitant]
     Active Substance: METHOTREXATE
     Indication: Rheumatoid arthritis
     Route: 058
  110. METHOTREXATE [Concomitant]
     Active Substance: METHOTREXATE
     Route: 048
  111. METHOTREXATE [Concomitant]
     Active Substance: METHOTREXATE
     Route: 048
  112. METHOTREXATE [Concomitant]
     Active Substance: METHOTREXATE
     Route: 048
  113. METHOTREXATE [Concomitant]
     Active Substance: METHOTREXATE
     Route: 058
  114. METHOTREXATE [Concomitant]
     Active Substance: METHOTREXATE
     Route: 058
  115. METHOTREXATE [Concomitant]
     Active Substance: METHOTREXATE
     Route: 048
  116. METHOTREXATE [Concomitant]
     Active Substance: METHOTREXATE
  117. METHOTREXATE [Concomitant]
     Active Substance: METHOTREXATE
     Dosage: SOLUTION INTRA-ARTERIAL
     Route: 048
  118. METHYLPREDNISOLONE SODIUM SUCCINATE [Concomitant]
     Active Substance: METHYLPREDNISOLONE SODIUM SUCCINATE
     Indication: Product used for unknown indication
  119. METHYLPREDNISOLONE SODIUM SUCCINATE [Concomitant]
     Active Substance: METHYLPREDNISOLONE SODIUM SUCCINATE
  120. MINOCYCLINE [Concomitant]
     Active Substance: MINOCYCLINE HYDROCHLORIDE
     Indication: Rheumatoid arthritis
  121. MINOCYCLINE HYDROCHLORIDE [Concomitant]
     Active Substance: MINOCYCLINE HYDROCHLORIDE
     Indication: Rheumatoid arthritis
  122. MYOCHRYSINE [Concomitant]
     Active Substance: GOLD SODIUM THIOMALATE
     Indication: Rheumatoid arthritis
     Route: 030
  123. MYRBETRIQ [Concomitant]
     Active Substance: MIRABEGRON
     Indication: Product used for unknown indication
     Dosage: TABLET (EXTENDED-RELEASE)
  124. MYRBETRIQ [Concomitant]
     Active Substance: MIRABEGRON
  125. NAPROXEN [Concomitant]
     Active Substance: NAPROXEN
     Indication: Rheumatoid arthritis
  126. NAPROXEN [Concomitant]
     Active Substance: NAPROXEN
  127. NAPROXEN [Concomitant]
     Active Substance: NAPROXEN
  128. NEOMYCIN SULFATE [Concomitant]
     Active Substance: NEOMYCIN SULFATE
     Indication: Rheumatoid arthritis
  129. NUCALA [Concomitant]
     Active Substance: MEPOLIZUMAB
     Indication: Product used for unknown indication
  130. OXYCODONE [Concomitant]
     Active Substance: OXYCODONE
     Indication: Product used for unknown indication
  131. OXYCODONE TEREPHTHALATE [Concomitant]
     Active Substance: OXYCODONE TEREPHTHALATE
     Indication: Product used for unknown indication
  132. PERIOGARD [Concomitant]
     Active Substance: CHLORHEXIDINE GLUCONATE
     Indication: Product used for unknown indication
  133. PHTHALYLSULFATHIAZOLE [Concomitant]
     Active Substance: PHTHALYLSULFATHIAZOLE
     Indication: Rheumatoid arthritis
  134. PHTHALYLSULFATHIAZOLE [Concomitant]
     Active Substance: PHTHALYLSULFATHIAZOLE
     Route: 048
  135. PHTHALYLSULFATHIAZOLE [Concomitant]
     Active Substance: PHTHALYLSULFATHIAZOLE
     Route: 048
  136. POVIDONE-IODINE [Concomitant]
     Active Substance: POVIDONE-IODINE
     Indication: Product used for unknown indication
  137. PSEUDOEPHEDRINE HYDROCHLORIDE [Concomitant]
     Active Substance: PSEUDOEPHEDRINE HYDROCHLORIDE
     Indication: Rheumatoid arthritis
  138. PSEUDOEPHEDRINE HYDROCHLORIDE [Concomitant]
     Active Substance: PSEUDOEPHEDRINE HYDROCHLORIDE
  139. PSEUDOEPHEDRINE HYDROCHLORIDE [Concomitant]
     Active Substance: PSEUDOEPHEDRINE HYDROCHLORIDE
  140. RAMIPRIL [Concomitant]
     Active Substance: RAMIPRIL
     Indication: Rheumatoid arthritis
     Route: 040
  141. RAMIPRIL [Concomitant]
     Active Substance: RAMIPRIL
     Route: 016
  142. RAMIPRIL [Concomitant]
     Active Substance: RAMIPRIL
  143. RANITIDINE [Concomitant]
     Active Substance: RANITIDINE
     Indication: Product used for unknown indication
  144. CETIRIZINE HYDROCHLORIDE\PSEUDOEPHEDRINE HYDROCHLORIDE [Concomitant]
     Active Substance: CETIRIZINE HYDROCHLORIDE\PSEUDOEPHEDRINE HYDROCHLORIDE
     Indication: Rheumatoid arthritis
     Dosage: TABLET (EXTENDED-RELEASE)
  145. CETIRIZINE HYDROCHLORIDE\PSEUDOEPHEDRINE HYDROCHLORIDE [Concomitant]
     Active Substance: CETIRIZINE HYDROCHLORIDE\PSEUDOEPHEDRINE HYDROCHLORIDE
  146. REMICADE [Concomitant]
     Active Substance: INFLIXIMAB
     Indication: Rheumatoid arthritis
     Route: 040
  147. REMICADE [Concomitant]
     Active Substance: INFLIXIMAB
     Route: 040
  148. REMICADE [Concomitant]
     Active Substance: INFLIXIMAB
  149. REMICADE [Concomitant]
     Active Substance: INFLIXIMAB
     Route: 040
  150. REMICADE [Concomitant]
     Active Substance: INFLIXIMAB
     Route: 040
  151. REMICADE [Concomitant]
     Active Substance: INFLIXIMAB
     Dosage: POWDER FOR SOLUTION INTRAVENOUS
     Route: 042
  152. RIBOFLAVIN [Concomitant]
     Active Substance: RIBOFLAVIN
     Indication: Product used for unknown indication
  153. RITUXIMAB [Concomitant]
     Active Substance: RITUXIMAB
     Indication: Rheumatoid arthritis
     Route: 058
  154. RITUXIMAB [Concomitant]
     Active Substance: RITUXIMAB
  155. RITUXIMAB [Concomitant]
     Active Substance: RITUXIMAB
  156. RITUXIMAB [Concomitant]
     Active Substance: RITUXIMAB
     Dosage: SUBDERMAL
  157. RITUXIMAB [Concomitant]
     Active Substance: RITUXIMAB
  158. RITUXIMAB [Concomitant]
     Active Substance: RITUXIMAB
  159. RITUXIMAB [Concomitant]
     Active Substance: RITUXIMAB
     Route: 043
  160. RITUXIMAB [Concomitant]
     Active Substance: RITUXIMAB
  161. RITUXIMAB [Concomitant]
     Active Substance: RITUXIMAB
  162. RITUXIMAB [Concomitant]
     Active Substance: RITUXIMAB
     Route: 058
  163. RITUXIMAB [Concomitant]
     Active Substance: RITUXIMAB
     Route: 043
  164. RITUXIMAB [Concomitant]
     Active Substance: RITUXIMAB
     Route: 042
  165. RITUXIMAB [Concomitant]
     Active Substance: RITUXIMAB
     Route: 042
  166. RITUXIMAB [Concomitant]
     Active Substance: RITUXIMAB
  167. SULFASALAZINE [Concomitant]
     Active Substance: SULFASALAZINE
     Indication: Rheumatoid arthritis
     Route: 058
  168. SULFASALAZINE [Concomitant]
     Active Substance: SULFASALAZINE
     Route: 048
  169. SULFASALAZINE [Concomitant]
     Active Substance: SULFASALAZINE
     Route: 048
  170. SULFASALAZINE [Concomitant]
     Active Substance: SULFASALAZINE
     Route: 048
  171. SULFASALAZINE [Concomitant]
     Active Substance: SULFASALAZINE
     Route: 048
  172. SULFASALAZINE [Concomitant]
     Active Substance: SULFASALAZINE
  173. SULFASALAZINE [Concomitant]
     Active Substance: SULFASALAZINE
     Route: 048
  174. SULFASALAZINE [Concomitant]
     Active Substance: SULFASALAZINE
     Route: 048
  175. SULFASALAZINE [Concomitant]
     Active Substance: SULFASALAZINE
     Route: 048
  176. SULFASALAZINE [Concomitant]
     Active Substance: SULFASALAZINE
     Route: 058
  177. SULFASALAZINE [Concomitant]
     Active Substance: SULFASALAZINE
  178. SULFASALAZINE [Concomitant]
     Active Substance: SULFASALAZINE
     Route: 048
  179. APREMILAST [Concomitant]
     Active Substance: APREMILAST
     Indication: Rheumatoid arthritis
  180. HYDROCORTISONE [Concomitant]
     Active Substance: HYDROCORTISONE
     Indication: Rheumatoid arthritis
     Route: 058
  181. HYDROCORTISONE [Concomitant]
     Active Substance: HYDROCORTISONE
  182. TOPIRAMATE [Concomitant]
     Active Substance: TOPIRAMATE
     Indication: Migraine
  183. TOPIRAMATE [Concomitant]
     Active Substance: TOPIRAMATE
  184. SIMPONI [Concomitant]
     Active Substance: GOLIMUMAB
     Indication: Rheumatoid arthritis
     Route: 058
  185. SIMPONI [Concomitant]
     Active Substance: GOLIMUMAB
     Route: 058
  186. SIRUKUMAB [Concomitant]
     Active Substance: SIRUKUMAB
     Indication: Product used for unknown indication
  187. GOLD SODIUM THIOMALATE [Concomitant]
     Active Substance: GOLD SODIUM THIOMALATE
     Indication: Product used for unknown indication
     Route: 048
  188. SULFAMETHOXAZOLE [Concomitant]
     Active Substance: SULFAMETHOXAZOLE
     Indication: Product used for unknown indication
  189. THIAMINE [Concomitant]
     Active Substance: THIAMINE
     Indication: Migraine
  190. TOCILIZUMAB [Concomitant]
     Active Substance: TOCILIZUMAB
     Indication: Rheumatoid arthritis
     Route: 040
  191. TOCILIZUMAB [Concomitant]
     Active Substance: TOCILIZUMAB
     Route: 048
  192. TOCILIZUMAB [Concomitant]
     Active Substance: TOCILIZUMAB
  193. TOCILIZUMAB [Concomitant]
     Active Substance: TOCILIZUMAB
  194. TOCILIZUMAB [Concomitant]
     Active Substance: TOCILIZUMAB
     Route: 058
  195. TOCILIZUMAB [Concomitant]
     Active Substance: TOCILIZUMAB
     Route: 042
  196. TOCILIZUMAB [Concomitant]
     Active Substance: TOCILIZUMAB
  197. TRAMADOL HYDROCHLORIDE [Concomitant]
     Active Substance: TRAMADOL HYDROCHLORIDE
     Indication: Product used for unknown indication
  198. TRIAMCINOLONE [Concomitant]
     Active Substance: TRIAMCINOLONE
     Indication: Rheumatoid arthritis
  199. VITAMIN A [Concomitant]
     Active Substance: VITAMIN A
     Indication: Product used for unknown indication
  200. VITAMIN C [Concomitant]
     Active Substance: ASCORBIC ACID
     Indication: Product used for unknown indication
  201. VOLTAREN [Concomitant]
     Active Substance: DICLOFENAC SODIUM
     Indication: Product used for unknown indication
  202. XELJANZ [Concomitant]
     Active Substance: TOFACITINIB CITRATE
     Indication: Rheumatoid arthritis
     Route: 048
  203. XELJANZ [Concomitant]
     Active Substance: TOFACITINIB CITRATE
     Route: 048
  204. XELJANZ [Concomitant]
     Active Substance: TOFACITINIB CITRATE
     Route: 048

REACTIONS (38)
  - C-reactive protein abnormal [Unknown]
  - C-reactive protein increased [Unknown]
  - Confusional state [Unknown]
  - Contraindicated product administered [Unknown]
  - Drug hypersensitivity [Unknown]
  - Drug ineffective [Unknown]
  - Dyspnoea [Unknown]
  - Ill-defined disorder [Unknown]
  - Infusion related reaction [Unknown]
  - Injection site reaction [Unknown]
  - Intentional product use issue [Unknown]
  - Nausea [Unknown]
  - Off label use [Unknown]
  - Onychomadesis [Unknown]
  - Onychomycosis [Unknown]
  - Overdose [Unknown]
  - Pain [Unknown]
  - Pemphigus [Unknown]
  - Pericarditis [Unknown]
  - Product use in unapproved indication [Unknown]
  - Product use issue [Unknown]
  - Psoriatic arthropathy [Unknown]
  - Rash [Unknown]
  - Rheumatic fever [Unknown]
  - Rheumatoid arthritis [Unknown]
  - Sleep disorder [Unknown]
  - Swelling [Unknown]
  - Synovitis [Unknown]
  - Systemic lupus erythematosus [Unknown]
  - Therapeutic product effect decreased [Unknown]
  - Therapeutic product effect incomplete [Unknown]
  - Treatment failure [Unknown]
  - Type 2 diabetes mellitus [Unknown]
  - Underdose [Unknown]
  - Wound [Unknown]
  - Hospitalisation [Unknown]
  - Adverse event [Unknown]
  - Congenital anomaly [Unknown]
